FAERS Safety Report 12193329 (Version 3)
Quarter: 2017Q3

REPORT INFORMATION
  Report Type: Spontaneous
  Country: US (occurrence: US)
  Receive Date: 20160319
  Receipt Date: 20170707
  Transmission Date: 20171127
  Serious: Yes (Other)
  Sender: FDA-Public Use
  Company Number: US-ASTRAZENECA-2016SE19862

PATIENT
  Age: 892 Month
  Sex: Female
  Weight: 71.4 kg

DRUGS (3)
  1. BYETTA [Suspect]
     Active Substance: EXENATIDE
     Indication: DIABETES MELLITUS
     Dosage: 250 MCG/1.2 ML, 1.2 ML TWO TIMES A DAY
     Route: 058
  2. BYETTA [Suspect]
     Active Substance: EXENATIDE
     Indication: DIABETES MELLITUS
     Route: 058
     Dates: end: 20160219
  3. SIMVASTATIN. [Concomitant]
     Active Substance: SIMVASTATIN
     Indication: BLOOD CHOLESTEROL ABNORMAL
     Route: 048

REACTIONS (12)
  - Weight decreased [Recovered/Resolved]
  - Back disorder [Unknown]
  - Gait disturbance [Unknown]
  - Hypophagia [Unknown]
  - Drug dose omission [Not Recovered/Not Resolved]
  - Renal failure [Unknown]
  - Body height decreased [Unknown]
  - Arthralgia [Unknown]
  - Blood glucose decreased [Unknown]
  - Blood pressure increased [Unknown]
  - Back pain [Unknown]
  - Intervertebral disc disorder [Unknown]

NARRATIVE: CASE EVENT DATE: 201602
